FAERS Safety Report 24703396 (Version 1)
Quarter: 2024Q4

REPORT INFORMATION
  Report Type: Report from Study
  Country: FR (occurrence: FR)
  Receive Date: 20241205
  Receipt Date: 20241205
  Transmission Date: 20250114
  Serious: No
  Sender: SANDOZ
  Company Number: FR-SANDOZ-SDZ2023FR012954

PATIENT
  Age: 4 Year
  Sex: Male

DRUGS (1)
  1. OMNITROPE [Suspect]
     Active Substance: SOMATROPIN
     Indication: Multiple sclerosis
     Dosage: 0.3 MG, QD
     Route: 065

REACTIONS (1)
  - Injection site pain [Unknown]
